FAERS Safety Report 6115501-8 (Version None)
Quarter: 2009Q1

REPORT INFORMATION
  Report Type: 
  Country: None (occurrence: None)
  Receive Date: 20090313
  Receipt Date: 20090227
  Transmission Date: 20090719
  Serious: Yes (Other)
  Sender: FDA-Public Use
  Company Number: JP-GENENTECH-278078

PATIENT
  Age: 53 Year
  Sex: Male

DRUGS (5)
  1. BEVACIZUMAB [Suspect]
     Indication: RECTAL CANCER
     Dosage: 5 MG/KG, UNK
     Dates: start: 20071001
  2. FOLINIC ACID [Suspect]
     Indication: RECTAL CANCER
     Dosage: UNK
     Dates: start: 20060606, end: 20071001
  3. FLUOROURACIL [Suspect]
     Indication: RECTAL CANCER
     Dosage: UNK
     Dates: start: 20060601, end: 20071001
  4. IRINOTECAN HCL [Suspect]
     Indication: RECTAL CANCER
     Dosage: UNK
     Dates: start: 20060601, end: 20071001
  5. OXALIPLATIN [Suspect]
     Indication: RECTAL CANCER
     Dosage: UNK
     Dates: start: 20071001

REACTIONS (2)
  - DIVERTICULITIS [None]
  - INTESTINAL PERFORATION [None]
